FAERS Safety Report 5733015-1 (Version None)
Quarter: 2008Q2

REPORT INFORMATION
  Report Type: 
  Country: None (occurrence: None)
  Receive Date: 20080509
  Receipt Date: 20080428
  Transmission Date: 20081010
  Serious: Yes (Other)
  Sender: FDA-Public Use
  Company Number: HQWYE447527JUL04

PATIENT
  Sex: Female
  Weight: 115.77 kg

DRUGS (2)
  1. PREMPRO [Suspect]
     Indication: HORMONE REPLACEMENT THERAPY
     Dosage: 0.625/2.5 MG (FREQUENCY UNSPECIFIED)
     Route: 048
     Dates: start: 20010401, end: 20040301
  2. FEMHRT [Suspect]
     Indication: HORMONE REPLACEMENT THERAPY
     Dosage: 1/5 (UNITS ANF FREQUENCY UNSPECIFIED)
     Dates: start: 20010201, end: 20010401

REACTIONS (1)
  - BREAST CANCER METASTATIC [None]
